FAERS Safety Report 5873737-5 (Version None)
Quarter: 2008Q3

REPORT INFORMATION
  Report Type: 
  Country: None (occurrence: None)
  Receive Date: 20080904
  Receipt Date: 20080904
  Transmission Date: 20090109
  Serious: No
  Sender: FDA-Public Use
  Company Number: None

PATIENT
  Age: 73 Year
  Sex: Male

DRUGS (3)
  1. VARENICLINE [Suspect]
     Indication: CARDIOVASCULAR DISORDER
     Dosage: BID
     Dates: start: 20071003, end: 20080902
  2. VARENICLINE [Suspect]
     Indication: HYPERTENSION
     Dosage: BID
     Dates: start: 20071003, end: 20080902
  3. VARENICLINE [Suspect]
     Indication: SMOKING CESSATION THERAPY
     Dosage: BID
     Dates: start: 20071003, end: 20080902

REACTIONS (4)
  - NAUSEA [None]
  - NERVOUSNESS [None]
  - STOMACH DISCOMFORT [None]
  - VOMITING [None]
